FAERS Safety Report 18356809 (Version 2)
Quarter: 2020Q4

REPORT INFORMATION
  Report Type: Spontaneous
  Country: JP (occurrence: JP)
  Receive Date: 20201007
  Receipt Date: 20201014
  Transmission Date: 20210114
  Serious: Yes (Other)
  Sender: FDA-Public Use
  Company Number: JP-MYLANLABS-2020M1083900

PATIENT
  Age: 56 Year
  Sex: Female

DRUGS (1)
  1. NOLVADEX                           /00388701/ [Suspect]
     Active Substance: TAMOXIFEN CITRATE
     Indication: INTRADUCTAL PROLIFERATIVE BREAST LESION
     Route: 048

REACTIONS (2)
  - Pneumonia [Recovering/Resolving]
  - Drug-induced liver injury [Recovered/Resolved]
